FAERS Safety Report 6053089-0 (Version None)
Quarter: 2009Q1

REPORT INFORMATION
  Report Type: 
  Country: None (occurrence: None)
  Receive Date: 20090127
  Receipt Date: 20090119
  Transmission Date: 20090719
  Serious: Yes (Hospitalization)
  Sender: FDA-Public Use
  Company Number: US-BIOGENIDEC-2008BI029631

PATIENT
  Age: 62 Year
  Sex: Female

DRUGS (2)
  1. AVONEX [Suspect]
     Indication: MULTIPLE SCLEROSIS
     Route: 030
     Dates: start: 20011001
  2. AVONEX [Suspect]
     Route: 030
     Dates: end: 20081102

REACTIONS (8)
  - ACUTE SINUSITIS [None]
  - COUGH [None]
  - DRUG INEFFECTIVE [None]
  - DYSPNOEA [None]
  - FEELING COLD [None]
  - INFLUENZA LIKE ILLNESS [None]
  - PNEUMONIA BACTERIAL [None]
  - VOMITING [None]
